FAERS Safety Report 26201919 (Version 1)
Quarter: 2025Q4

REPORT INFORMATION
  Report Type: Report from Study
  Country: EU (occurrence: EU)
  Receive Date: 20251226
  Receipt Date: 20251226
  Transmission Date: 20260117
  Serious: Yes (Hospitalization, Other)
  Sender: TAKEDA
  Company Number: EU-JNJFOC-20251223147

PATIENT
  Age: 8 Decade
  Sex: Female
  Weight: 72 kg

DRUGS (3)
  1. BORTEZOMIB [Suspect]
     Active Substance: BORTEZOMIB
     Indication: Plasma cell myeloma
     Dosage: 1.3 MILLIGRAM/SQ. METER
     Dates: start: 20250918, end: 20251030
  2. DEXAMETHASONE [Suspect]
     Active Substance: DEXAMETHASONE
     Indication: Plasma cell myeloma
     Dosage: 20 MILLIGRAM/SQ. METER
     Dates: start: 20250918, end: 20251030
  3. SELINEXOR [Suspect]
     Active Substance: SELINEXOR
     Indication: Plasma cell myeloma
     Dosage: 100 MILLIGRAM/KILOGRAM
     Dates: start: 20250918, end: 20251030

REACTIONS (2)
  - Femur fracture [Recovering/Resolving]
  - Hypercalcaemia [Recovered/Resolved]

NARRATIVE: CASE EVENT DATE: 20250925
